FAERS Safety Report 20396646 (Version 2)
Quarter: 2022Q1

REPORT INFORMATION
  Report Type: Spontaneous
  Country: US (occurrence: US)
  Receive Date: 20220130
  Receipt Date: 20220201
  Transmission Date: 20220423
  Serious: No
  Sender: FDA-Public Use
  Company Number: US-ABBVIE-21K-163-3757107-00

PATIENT
  Age: 71 Year
  Sex: Female

DRUGS (5)
  1. HUMIRA [Suspect]
     Active Substance: ADALIMUMAB
     Indication: Rheumatoid arthritis
     Route: 058
     Dates: start: 2016, end: 2019
  2. HUMIRA [Suspect]
     Active Substance: ADALIMUMAB
     Route: 058
     Dates: start: 2019, end: 20201211
  3. SULFASALAZINE [Concomitant]
     Active Substance: SULFASALAZINE
     Indication: Rheumatoid arthritis
  4. CELEBREX [Concomitant]
     Active Substance: CELECOXIB
     Indication: Rheumatoid arthritis
  5. VITAMIN D [Concomitant]
     Active Substance: VITAMIN D NOS
     Indication: Supplementation therapy

REACTIONS (8)
  - SARS-CoV-2 test positive [Recovering/Resolving]
  - Sinusitis [Recovering/Resolving]
  - Ear discomfort [Recovering/Resolving]
  - Otorrhoea [Recovering/Resolving]
  - Ear discomfort [Recovering/Resolving]
  - Hypoacusis [Recovering/Resolving]
  - Red blood cell sedimentation rate increased [Unknown]
  - Discomfort [Unknown]

NARRATIVE: CASE EVENT DATE: 20201228
